FAERS Safety Report 25453494 (Version 2)
Quarter: 2025Q3

REPORT INFORMATION
  Report Type: Spontaneous
  Country: GB (occurrence: GB)
  Receive Date: 20250619
  Receipt Date: 20250716
  Transmission Date: 20251021
  Serious: Yes (Death, Hospitalization)
  Sender: AMGEN
  Company Number: GB-AMGEN-GBRSP2025118735

PATIENT
  Age: 92 Year
  Sex: Male

DRUGS (1)
  1. ARANESP [Suspect]
     Active Substance: DARBEPOETIN ALFA
     Indication: Product used for unknown indication
     Dosage: 100 MICROGRAM//0.5ML, Q2WK
     Route: 058
     Dates: end: 20250710

REACTIONS (2)
  - Death [Fatal]
  - Hospitalisation [Unknown]

NARRATIVE: CASE EVENT DATE: 20250710
